FAERS Safety Report 6427674-8 (Version None)
Quarter: 2009Q4

REPORT INFORMATION
  Report Type: 
  Country: None (occurrence: None)
  Receive Date: 20091105
  Receipt Date: 20091027
  Transmission Date: 20100525
  Serious: Yes (Other)
  Sender: FDA-Public Use
  Company Number: PT-RANBAXY-2009R3-28884

PATIENT

DRUGS (8)
  1. STAVUDINE [Suspect]
     Indication: HIV INFECTION
     Dosage: UNK
     Route: 065
     Dates: start: 20030201
  2. TENOFOVIR DISOPROXIL FUMARATE [Suspect]
     Indication: HIV INFECTION
     Dosage: UNK
     Route: 065
     Dates: start: 20030201
  3. EFAVIRENZ [Suspect]
     Indication: HIV INFECTION
     Dosage: UNK
     Route: 065
     Dates: start: 20030201
  4. LOPINAVIR AND RITONAVIR [Suspect]
     Indication: HIV INFECTION
     Dosage: UNK
     Route: 065
     Dates: start: 20030201
  5. ASPIRIN [Suspect]
     Indication: DRUG USE FOR UNKNOWN INDICATION
  6. CLOPIDOGREL [Suspect]
     Indication: DRUG USE FOR UNKNOWN INDICATION
  7. ATENOLOL [Suspect]
     Indication: DRUG USE FOR UNKNOWN INDICATION
  8. SIMVASTATIN [Suspect]
     Indication: DRUG USE FOR UNKNOWN INDICATION

REACTIONS (10)
  - ABDOMINAL DISTENSION [None]
  - CHEST PAIN [None]
  - DYSLIPIDAEMIA [None]
  - FAT TISSUE INCREASED [None]
  - HYPERHIDROSIS [None]
  - LIPOATROPHY [None]
  - LIPODYSTROPHY ACQUIRED [None]
  - MYOCARDIAL INFARCTION [None]
  - PALPITATIONS [None]
  - SINUS TACHYCARDIA [None]
